FAERS Safety Report 25544533 (Version 1)
Quarter: 2025Q3

REPORT INFORMATION
  Report Type: Spontaneous
  Country: US (occurrence: US)
  Receive Date: 20250711
  Receipt Date: 20250711
  Transmission Date: 20251020
  Serious: No
  Sender: MERCK SHARP & DOHME LLC
  Company Number: US-009507513-2307759

PATIENT
  Age: 77 Year
  Sex: Male

DRUGS (1)
  1. CEFTOLOZANE [Suspect]
     Active Substance: CEFTOLOZANE
     Indication: Pseudomonal bacteraemia
     Dosage: 2.5 G IV Q8H, RENALLY ADJUSTED
     Route: 042

REACTIONS (1)
  - Product use in unapproved indication [Unknown]
